FAERS Safety Report 20135634 (Version 1)
Quarter: 2021Q4

REPORT INFORMATION
  Report Type: Spontaneous
  Country: US (occurrence: None)
  Receive Date: 20211201
  Receipt Date: 20211201
  Transmission Date: 20220303
  Serious: Yes (Hospitalization)
  Sender: FDA-Public Use
  Company Number: None

PATIENT
  Age: 71 Year
  Sex: Male
  Weight: 92 kg

DRUGS (2)
  1. ENOXAPARIN [Suspect]
     Active Substance: ENOXAPARIN
     Indication: Atrial fibrillation
     Dosage: FREQUENCY : DAILY;?
     Route: 058
     Dates: start: 20210710, end: 20210712
  2. WARFARIN SODIUM [Suspect]
     Active Substance: WARFARIN SODIUM
     Indication: Product used for unknown indication
     Dosage: FREQUENCY : DAILY;?
     Route: 048
     Dates: start: 20210710, end: 20210827

REACTIONS (9)
  - Epistaxis [None]
  - Contusion [None]
  - Abdominal pain lower [None]
  - Nausea [None]
  - Catheter site erythema [None]
  - Abdominal wall haematoma [None]
  - Product dose omission issue [None]
  - Anticoagulation drug level below therapeutic [None]
  - Treatment noncompliance [None]

NARRATIVE: CASE EVENT DATE: 20210712
